FAERS Safety Report 11061548 (Version 4)
Quarter: 2018Q4

REPORT INFORMATION
  Report Type: Spontaneous
  Country: US (occurrence: US)
  Receive Date: 20150424
  Receipt Date: 20181219
  Transmission Date: 20190204
  Serious: No
  Sender: FDA-Public Use
  Company Number: US-PFIZER INC-2015139229

PATIENT
  Age: 56 Year
  Sex: Female
  Weight: 87.54 kg

DRUGS (5)
  1. SOMAVERT [Suspect]
     Active Substance: PEGVISOMANT
     Indication: ACROMEGALY
     Dosage: 10 MG, ONCE DAILY
     Route: 058
  2. OCTREOTIDE. [Concomitant]
     Active Substance: OCTREOTIDE
     Indication: ACROMEGALY
     Dosage: 500 UG, THRICE DAILY
     Dates: start: 2013
  3. SOMAVERT [Suspect]
     Active Substance: PEGVISOMANT
     Indication: PITUITARY TUMOUR
     Dosage: 10 MG, ALTERNATE DAY (QOD)
     Route: 058
  4. SOMAVERT [Suspect]
     Active Substance: PEGVISOMANT
     Dosage: 15 MG, ALTERNATE DAY (EVERY OTHER DAY)
     Route: 058
     Dates: end: 201805
  5. SOMAVERT [Suspect]
     Active Substance: PEGVISOMANT
     Dosage: 15 MG, UNK (15MG 3 DAYS A WEEK)

REACTIONS (6)
  - Arthralgia [Recovering/Resolving]
  - Fall [Not Recovered/Not Resolved]
  - Disease recurrence [Unknown]
  - Headache [Unknown]
  - Product use issue [Unknown]
  - Musculoskeletal pain [Not Recovered/Not Resolved]

NARRATIVE: CASE EVENT DATE: 2014
